FAERS Safety Report 19777019 (Version 1)
Quarter: 2021Q3

REPORT INFORMATION
  Report Type: Spontaneous
  Country: US (occurrence: US)
  Receive Date: 20210902
  Receipt Date: 20210902
  Transmission Date: 20211014
  Serious: Yes (Other)
  Sender: FDA-Public Use
  Company Number: US-DRREDDYS-SPO/USA/21/0139574

PATIENT
  Age: 37 Year
  Sex: Female

DRUGS (2)
  1. ZENATANE [Suspect]
     Active Substance: ISOTRETINOIN
     Dosage: RMA ISSUE DATE: 27/APRIL/2021 7:16:15 PM
  2. ZENATANE [Suspect]
     Active Substance: ISOTRETINOIN
     Indication: PRODUCT USED FOR UNKNOWN INDICATION
     Dosage: RMA ISSUE DATE: 28/MAY/2021 12:43:21 PM, 29/JUNE/2021 1:28:02 PM, 29/JULY/2021 5:32:10 PM
     Dates: start: 20210528, end: 20210827

REACTIONS (1)
  - Mood altered [Unknown]
